FAERS Safety Report 11423198 (Version 1)
Quarter: 2015Q3

REPORT INFORMATION
  Report Type: Spontaneous
  Country: US (occurrence: None)
  Receive Date: 20150826
  Receipt Date: 20150826
  Transmission Date: 20151125
  Serious: Yes (Other)
  Sender: FDA-Public Use
  Company Number: None

PATIENT
  Age: 52 Year
  Sex: Female

DRUGS (1)
  1. SUTENT [Suspect]
     Active Substance: SUNITINIB MALATE
     Indication: CARCINOID SYNDROME
     Dosage: 1 CAP QD X 4 WEEKS THEN 2 WEEKS OFF
     Route: 048
     Dates: start: 20150420

REACTIONS (1)
  - Alopecia [None]

NARRATIVE: CASE EVENT DATE: 201508
